FAERS Safety Report 12428626 (Version 1)
Quarter: 2016Q2

REPORT INFORMATION
  Report Type: Spontaneous
  Country: US (occurrence: US)
  Receive Date: 20160602
  Receipt Date: 20160602
  Transmission Date: 20160815
  Serious: No
  Sender: FDA-Public Use
  Company Number: US-BAUSCH-BL-2015-023461

PATIENT
  Age: 62 Year
  Sex: Female

DRUGS (2)
  1. ELIDEL [Suspect]
     Active Substance: PIMECROLIMUS
     Indication: PRURITUS
     Dosage: 2-3 TIMES DAILY
     Dates: start: 20150925, end: 2015
  2. ELIDEL [Suspect]
     Active Substance: PIMECROLIMUS
     Dosage: 2 MORE TIMES
     Route: 061
     Dates: start: 20151008, end: 2015

REACTIONS (1)
  - Condition aggravated [Not Recovered/Not Resolved]

NARRATIVE: CASE EVENT DATE: 201509
